FAERS Safety Report 8992193 (Version 2)
Quarter: 2014Q1

REPORT INFORMATION
  Report Type: Report from Study
  Country: BE (occurrence: BE)
  Receive Date: 20121231
  Receipt Date: 20140306
  Transmission Date: 20141002
  Serious: Yes (Hospitalization)
  Sender: FDA-Public Use
  Company Number: BE-ROCHE-1173624

PATIENT
  Age: 47 Year
  Sex: Female
  Weight: 52.6 kg

DRUGS (5)
  1. BEVACIZUMAB [Suspect]
     Indication: RECTAL CANCER
     Dosage: LAST DOSE PRIOR TO SAE ON 10/DEC/2012
     Route: 042
     Dates: start: 20121112
  2. CAPECITABINE [Suspect]
     Indication: RECTAL CANCER
     Dosage: LAST DOSE PRIOR TO SAE ON 10/DEC/2012
     Route: 048
     Dates: start: 20121126, end: 20121210
  3. CAPECITABINE [Suspect]
     Route: 048
     Dates: start: 20121219
  4. OXALIPLATIN [Suspect]
     Indication: RECTAL CANCER
     Dosage: LAST DOSE PRIOR TO SAE ON 10/DEC/2012
     Route: 042
     Dates: start: 20121126, end: 20121210
  5. BETAHISTINE [Concomitant]
     Route: 065

REACTIONS (1)
  - Gastroenteritis [Recovered/Resolved]
